FAERS Safety Report 7202740-8 (Version None)
Quarter: 2010Q4

REPORT INFORMATION
  Report Type: 
  Country: None (occurrence: None)
  Receive Date: 20101229
  Receipt Date: 20101220
  Transmission Date: 20110411
  Serious: Yes (Other)
  Sender: FDA-Public Use
  Company Number: US-PFIZER INC-2010176716

PATIENT
  Age: 86 Year
  Sex: Female
  Weight: 63.492 kg

DRUGS (2)
  1. CELEBREX [Suspect]
     Dosage: UNK
  2. HYDROCHLOROTHIAZIDE [Concomitant]

REACTIONS (1)
  - BREAST CANCER [None]
